FAERS Safety Report 20597433 (Version 1)
Quarter: 2022Q1

REPORT INFORMATION
  Report Type: Spontaneous
  Country: US (occurrence: US)
  Receive Date: 20220315
  Receipt Date: 20220315
  Transmission Date: 20220424
  Serious: No
  Sender: FDA-Public Use
  Company Number: US-MAYNE PHARMA-2021MYN000603

PATIENT
  Sex: Male

DRUGS (4)
  1. TAMOXIFEN CITRATE [Suspect]
     Active Substance: TAMOXIFEN CITRATE
     Indication: Product used for unknown indication
     Dosage: 20 MG
     Route: 048
     Dates: start: 2020
  2. ENZALUTAMIDE [Suspect]
     Active Substance: ENZALUTAMIDE
     Indication: Prostate cancer
     Dosage: UNK
     Route: 048
     Dates: start: 2020
  3. ENZALUTAMIDE [Suspect]
     Active Substance: ENZALUTAMIDE
     Indication: Breast cancer male
  4. ATORVASTATIN [Suspect]
     Active Substance: ATORVASTATIN
     Indication: Product used for unknown indication
     Dosage: 10 MG
     Route: 048

REACTIONS (2)
  - Drug interaction [Unknown]
  - Fatigue [Unknown]
